FAERS Safety Report 7429287-8 (Version None)
Quarter: 2011Q2

REPORT INFORMATION
  Report Type: 
  Country: None (occurrence: None)
  Receive Date: 20110421
  Receipt Date: 20110413
  Transmission Date: 20111010
  Serious: Yes (Disabling)
  Sender: FDA-Public Use
  Company Number: GB-BAXTER-2011BH005665

PATIENT
  Age: 46 Year
  Sex: Female
  Weight: 73 kg

DRUGS (30)
  1. SODIUM CHLORIDE 0.9% IN PLASTIC CONTAINER [Suspect]
     Route: 042
     Dates: start: 20101201, end: 20101201
  2. SODIUM CHLORIDE 0.9% IN PLASTIC CONTAINER [Suspect]
     Route: 042
     Dates: start: 20110111, end: 20110111
  3. PACLITAXEL [Suspect]
     Route: 042
     Dates: start: 20101229, end: 20101229
  4. ALOXI [Suspect]
     Indication: PRODUCT USED FOR UNKNOWN INDICATION
     Route: 042
     Dates: start: 20101124
  5. SODIUM CHLORIDE 0.9% IN PLASTIC CONTAINER [Suspect]
     Indication: BREAST CANCER
     Route: 042
     Dates: start: 20101124, end: 20101124
  6. SODIUM CHLORIDE 0.9% IN PLASTIC CONTAINER [Suspect]
     Route: 042
     Dates: start: 20101216, end: 20101216
  7. SODIUM CHLORIDE 0.9% IN PLASTIC CONTAINER [Suspect]
     Route: 042
     Dates: start: 20101229, end: 20101229
  8. PACLITAXEL [Suspect]
     Indication: BREAST CANCER
     Route: 042
     Dates: start: 20101124, end: 20101124
  9. PACLITAXEL [Suspect]
     Route: 042
     Dates: start: 20110111, end: 20110111
  10. PACLITAXEL [Suspect]
     Route: 042
     Dates: start: 20110119, end: 20110119
  11. DEXAMETHASONE [Suspect]
     Indication: PRODUCT USED FOR UNKNOWN INDICATION
     Route: 042
     Dates: start: 20101124
  12. RANITIDINE [Suspect]
     Indication: PRODUCT USED FOR UNKNOWN INDICATION
     Route: 042
     Dates: start: 20101124
  13. SODIUM CHLORIDE 0.9% IN PLASTIC CONTAINER [Suspect]
     Route: 042
     Dates: start: 20110126, end: 20110126
  14. PACLITAXEL [Suspect]
     Route: 042
     Dates: start: 20110202, end: 20110202
  15. PACLITAXEL [Suspect]
     Route: 042
     Dates: start: 20101208, end: 20101208
  16. CHLORPHENAMINE [Suspect]
     Indication: PRODUCT USED FOR UNKNOWN INDICATION
     Route: 042
     Dates: start: 20101124
  17. SODIUM CHLORIDE 0.9% IN PLASTIC CONTAINER [Suspect]
     Route: 042
     Dates: start: 20110209, end: 20110209
  18. SODIUM CHLORIDE 0.9% IN PLASTIC CONTAINER [Suspect]
     Route: 042
     Dates: start: 20110216, end: 20110216
  19. SODIUM CHLORIDE 0.9% IN PLASTIC CONTAINER [Suspect]
     Route: 042
  20. PACLITAXEL [Suspect]
     Route: 042
     Dates: start: 20101201, end: 20101201
  21. PACLITAXEL [Suspect]
     Route: 042
     Dates: start: 20101222, end: 20101222
  22. SODIUM CHLORIDE 0.9% IN PLASTIC CONTAINER [Suspect]
     Indication: PRODUCT USED FOR UNKNOWN INDICATION
     Route: 042
     Dates: start: 20101124
  23. PACLITAXEL [Suspect]
     Route: 042
     Dates: start: 20110209, end: 20110209
  24. SODIUM CHLORIDE 0.9% IN PLASTIC CONTAINER [Suspect]
     Route: 042
     Dates: start: 20110202, end: 20110202
  25. PACLITAXEL [Suspect]
     Route: 042
     Dates: start: 20110216, end: 20110216
  26. SODIUM CHLORIDE 0.9% IN PLASTIC CONTAINER [Suspect]
     Route: 042
     Dates: start: 20101222, end: 20101222
  27. PACLITAXEL [Suspect]
     Route: 042
     Dates: start: 20101216, end: 20101216
  28. PACLITAXEL [Suspect]
     Route: 042
     Dates: start: 20110126, end: 20110126
  29. SODIUM CHLORIDE 0.9% IN PLASTIC CONTAINER [Suspect]
     Route: 042
     Dates: start: 20101208, end: 20101208
  30. SODIUM CHLORIDE 0.9% IN PLASTIC CONTAINER [Suspect]
     Route: 042
     Dates: start: 20110119, end: 20110119

REACTIONS (1)
  - NEUROPATHY PERIPHERAL [None]
